FAERS Safety Report 12846277 (Version 1)
Quarter: 2016Q4

REPORT INFORMATION
  Report Type: Spontaneous
  Country: US (occurrence: US)
  Receive Date: 20161014
  Receipt Date: 20161014
  Transmission Date: 20170207
  Serious: No
  Sender: FDA-Public Use
  Company Number: US-TEVA-696154USA

PATIENT
  Sex: Male

DRUGS (7)
  1. GABAPENTIN. [Suspect]
     Active Substance: GABAPENTIN
  2. GABAPENTIN. [Suspect]
     Active Substance: GABAPENTIN
  3. GABAPENTIN. [Suspect]
     Active Substance: GABAPENTIN
  4. LYRICA [Suspect]
     Active Substance: PREGABALIN
     Indication: HERPES ZOSTER
  5. GABAPENTIN. [Suspect]
     Active Substance: GABAPENTIN
     Indication: POST HERPETIC NEURALGIA
  6. GABAPENTIN. [Suspect]
     Active Substance: GABAPENTIN
  7. SONATA [Suspect]
     Active Substance: ZALEPLON
     Indication: INSOMNIA

REACTIONS (2)
  - Pain [Unknown]
  - Insomnia [Unknown]
